FAERS Safety Report 26153811 (Version 1)
Quarter: 2025Q4

REPORT INFORMATION
  Report Type: Spontaneous
  Country: US (occurrence: US)
  Receive Date: 20251214
  Receipt Date: 20251214
  Transmission Date: 20260117
  Serious: Yes (Other)
  Sender: ABBVIE
  Company Number: US-ABBVIE-6586597

PATIENT
  Age: 69 Year
  Sex: Male

DRUGS (4)
  1. VENCLEXTA [Suspect]
     Active Substance: VENETOCLAX
     Indication: Acute myeloid leukaemia
     Dosage: REGIMEN OF 100 MG AND 200 MG ON ALTERNATE DAYS, ONCE DAILY FOR 21 DAYS
     Route: 048
  2. VENCLEXTA [Suspect]
     Active Substance: VENETOCLAX
     Indication: Acute myeloid leukaemia
     Dosage: REGIMEN OF 100 MG AND 200 MG ON ALTERNATE DAYS, ONCE DAILY FOR 21 DAYS
     Route: 048
  3. CYTARABINE [Concomitant]
     Active Substance: CYTARABINE
     Indication: Product used for unknown indication
  4. VORICONAZOLE [Concomitant]
     Active Substance: VORICONAZOLE
     Indication: Hepatosplenic candidiasis

REACTIONS (3)
  - Acute myeloid leukaemia recurrent [Unknown]
  - Off label use [Unknown]
  - Minimal residual disease [Unknown]
